FAERS Safety Report 15424623 (Version 1)
Quarter: 2018Q3

REPORT INFORMATION
  Report Type: Spontaneous
  Country: JP (occurrence: JP)
  Receive Date: 20180925
  Receipt Date: 20180925
  Transmission Date: 20181010
  Serious: Yes (Other)
  Sender: FDA-Public Use
  Company Number: JP-JNJFOC-20180621660

PATIENT
  Age: 7 Decade
  Sex: Female

DRUGS (1)
  1. XEPLION [Suspect]
     Active Substance: PALIPERIDONE PALMITATE
     Indication: PRODUCT USED FOR UNKNOWN INDICATION
     Route: 030

REACTIONS (11)
  - Musculoskeletal stiffness [Not Recovered/Not Resolved]
  - Spinal osteoarthritis [Unknown]
  - Chest pain [Unknown]
  - Altered state of consciousness [Unknown]
  - Hallucination, auditory [Not Recovered/Not Resolved]
  - Nervousness [Unknown]
  - Delusion [Not Recovered/Not Resolved]
  - Palpitations [Unknown]
  - Judgement impaired [Unknown]
  - Posture abnormal [Not Recovered/Not Resolved]
  - Arthropod sting [Unknown]

NARRATIVE: CASE EVENT DATE: 201808
